FAERS Safety Report 11401989 (Version 1)
Quarter: 2015Q3

REPORT INFORMATION
  Report Type: Spontaneous
  Country: US (occurrence: None)
  Receive Date: 20150819
  Receipt Date: 20150819
  Transmission Date: 20151125
  Serious: Yes (Other)
  Sender: FDA-Public Use
  Company Number: None

PATIENT
  Age: 75 Year
  Sex: Male
  Weight: 98.43 kg

DRUGS (12)
  1. ROSUVASTATIN (CRESTOR) [Concomitant]
  2. LATANOPROST (XALATAN) [Concomitant]
  3. POMALYST [Suspect]
     Active Substance: POMALIDOMIDE
     Indication: PLASMA CELL MYELOMA
     Dosage: PILLS
     Route: 048
  4. MIRALAX [Concomitant]
     Active Substance: POLYETHYLENE GLYCOL 3350
  5. ASCORBIC ACID (VITAMIN C) [Concomitant]
     Active Substance: ASCORBIC ACID
  6. LISINOPRIL (PRINIVIL, ZESTRIL) [Concomitant]
  7. WARFARIN (COUMADIN) [Concomitant]
  8. CALCIUM CARBONATE (OS-CAL) [Concomitant]
  9. ZOMETA [Concomitant]
     Active Substance: ZOLEDRONIC ACID
  10. CYANOCOBALAMIN. [Concomitant]
     Active Substance: CYANOCOBALAMIN
  11. CHOLECALCIFEROL (VITAMIN D3) [Concomitant]
  12. POMALIDOMIDE (POMALYST) [Concomitant]

REACTIONS (2)
  - Transient ischaemic attack [None]
  - Atrial fibrillation [None]

NARRATIVE: CASE EVENT DATE: 20150817
